FAERS Safety Report 5422879-7 (Version None)
Quarter: 2007Q3

REPORT INFORMATION
  Report Type: 
  Country: None (occurrence: None)
  Receive Date: 20070822
  Receipt Date: 20070813
  Transmission Date: 20080115
  Serious: Yes (Disabling)
  Sender: FDA-Public Use
  Company Number: US-PFIZER INC-2007040673

PATIENT
  Age: 59 Year
  Sex: Male

DRUGS (4)
  1. DETROL [Suspect]
     Indication: URINARY INCONTINENCE
     Route: 048
     Dates: start: 20010101, end: 20020101
  2. DETROL LA [Suspect]
     Indication: INCONTINENCE
     Route: 048
     Dates: start: 20020101, end: 20060101
  3. ALLOPURINOL [Concomitant]
  4. MAGNESIUM SULFATE [Concomitant]
     Route: 065

REACTIONS (4)
  - ASTHENOPIA [None]
  - BLEPHAROSPASM [None]
  - DRY EYE [None]
  - DRY MOUTH [None]
